FAERS Safety Report 18348561 (Version 2)
Quarter: 2020Q4

REPORT INFORMATION
  Report Type: Spontaneous
  Country: BE (occurrence: BE)
  Receive Date: 20201006
  Receipt Date: 20201013
  Transmission Date: 20210114
  Serious: Yes (Hospitalization, Disabling)
  Sender: FDA-Public Use
  Company Number: BE-ABBVIE-20K-013-3589373-00

PATIENT
  Sex: Female

DRUGS (1)
  1. HUMIRA [Suspect]
     Active Substance: ADALIMUMAB
     Indication: HIDRADENITIS
     Route: 058
     Dates: start: 2018, end: 202007

REACTIONS (7)
  - General physical health deterioration [Not Recovered/Not Resolved]
  - Hypophagia [Unknown]
  - Hidradenitis [Unknown]
  - Muscular weakness [Unknown]
  - Dermatomyositis [Unknown]
  - Paradoxical psoriasis [Unknown]
  - Skin ulcer [Unknown]
